FAERS Safety Report 7402061-4 (Version None)
Quarter: 2011Q2

REPORT INFORMATION
  Report Type: 
  Country: None (occurrence: None)
  Receive Date: 20110408
  Receipt Date: 20090416
  Transmission Date: 20111010
  Serious: Yes (Death, Hospitalization, Other)
  Sender: FDA-Public Use
  Company Number: US-BAYER-200918362NA

PATIENT
  Sex: Male
  Weight: 65 kg

DRUGS (40)
  1. RED BLOOD CELLS, CONCENTRATED [Concomitant]
  2. PLATELETS [Concomitant]
     Dosage: 6 UNITS
     Dates: start: 20030731
  3. HEPARIN [Concomitant]
     Dosage: 23,000 UNITS
     Route: 042
     Dates: start: 20030731
  4. RED BLOOD CELLS, CONCENTRATED [Concomitant]
     Dosage: 2 UNITS
     Dates: start: 20030901
  5. PLATELETS [Concomitant]
     Dosage: 1 UNIT PACK
     Dates: start: 20030907
  6. FRESH FROZEN PLASMA [Concomitant]
     Dosage: 6 UNITS
     Dates: start: 20030731
  7. FRESH FROZEN PLASMA [Concomitant]
     Dosage: 2 UNITS
     Dates: start: 20030906
  8. FRESH FROZEN PLASMA [Concomitant]
     Dosage: 2 UNITS
     Dates: start: 20030907
  9. HEPARIN [Concomitant]
     Dosage: 27,000 UNITS CBP
     Dates: start: 20030731
  10. ANCEF [Concomitant]
     Dosage: 2 GRAMS
     Route: 042
     Dates: start: 20030731
  11. SOTALOL [Concomitant]
     Dosage: UNK
     Dates: start: 20030802
  12. FRESH FROZEN PLASMA [Concomitant]
     Dosage: 4 UNITS
     Dates: start: 20030910
  13. LASIX [Concomitant]
     Dosage: UNK
     Route: 042
     Dates: start: 20030802
  14. CIPRO [Concomitant]
     Dosage: UNK
     Dates: start: 20030813
  15. INSULIN [Concomitant]
     Dosage: UNK
     Route: 042
     Dates: start: 20030731
  16. PLATELETS [Concomitant]
     Dosage: INFUSED
     Dates: start: 20030802
  17. PLATELETS [Concomitant]
     Dosage: UNK
     Route: 042
     Dates: start: 20030808
  18. PLATELETS [Concomitant]
     Dosage: 6 UNITS
     Dates: start: 20030906
  19. ZOSYN [Concomitant]
     Dosage: UNK
     Dates: start: 20030812
  20. CASPOFUNGIN [Concomitant]
     Dosage: UNK
     Dates: start: 20030816
  21. RED BLOOD CELLS, CONCENTRATED [Concomitant]
     Dosage: 2 UNITS
     Dates: start: 20030913
  22. RED BLOOD CELLS, CONCENTRATED [Concomitant]
     Dosage: 1 UNIT
     Dates: start: 20030922
  23. RED BLOOD CELLS, CONCENTRATED [Concomitant]
     Dosage: 2 UNITS
     Dates: start: 20031007
  24. FRESH FROZEN PLASMA [Concomitant]
     Dosage: 4 UNITS
     Dates: start: 20031104
  25. AMIKACIN [Concomitant]
     Dosage: UNK
     Dates: start: 20030812
  26. RED BLOOD CELLS, CONCENTRATED [Concomitant]
     Dosage: 2 UNITS
     Dates: start: 20030907
  27. RED BLOOD CELLS, CONCENTRATED [Concomitant]
  28. FLUCONAZOLE [Concomitant]
     Dosage: UNK
     Dates: start: 20030812
  29. TRASYLOL [Suspect]
     Indication: CORONARY ARTERY BYPASS
     Dosage: 200 ML, CONT
     Route: 042
     Dates: start: 20030731, end: 20030731
  30. RED BLOOD CELLS, CONCENTRATED [Concomitant]
     Dosage: 2 UNITS
     Dates: start: 20030803
  31. RED BLOOD CELLS, CONCENTRATED [Concomitant]
     Dosage: 2 UNITS
     Route: 042
     Dates: start: 20030811
  32. RED BLOOD CELLS, CONCENTRATED [Concomitant]
     Dosage: 2 UNITS
     Dates: start: 20030915
  33. DIURIL [Concomitant]
     Dosage: UNK
     Dates: start: 20030915
  34. GENTAMICIN [Concomitant]
     Dosage: UNK
     Route: 042
     Dates: start: 20031008
  35. AMPICILLIN [Concomitant]
     Dosage: UNK
     Dates: start: 20031008
  36. TRASYLOL [Suspect]
     Indication: MITRAL VALVE REPLACEMENT
  37. TRASYLOL [Suspect]
     Indication: TRICUSPID VALVE REPAIR
  38. RED BLOOD CELLS, CONCENTRATED [Concomitant]
     Dosage: 7 UMITS
     Route: 042
     Dates: start: 20030731
  39. RED BLOOD CELLS, CONCENTRATED [Concomitant]
  40. VANCOMYCIN [Concomitant]
     Dosage: UNK
     Dates: start: 20030816

REACTIONS (53)
  - RENAL FAILURE [None]
  - ANXIETY [None]
  - UNEVALUABLE EVENT [None]
  - POST PROCEDURAL COMPLICATION [None]
  - PSEUDOMONAS TEST POSITIVE [None]
  - PLEURAL EFFUSION [None]
  - DEPRESSED LEVEL OF CONSCIOUSNESS [None]
  - THROMBOCYTOPENIA [None]
  - HYPOTENSION [None]
  - HAEMATURIA [None]
  - RENAL FAILURE ACUTE [None]
  - LIVEDO RETICULARIS [None]
  - VENTRICULAR EXTRASYSTOLES [None]
  - FUNGAL TEST POSITIVE [None]
  - DEVICE MALFUNCTION [None]
  - PERIPHERAL ISCHAEMIA [None]
  - BLOODY AIRWAY DISCHARGE [None]
  - JUGULAR VEIN THROMBOSIS [None]
  - SKIN GRAFT [None]
  - HAEMODYNAMIC INSTABILITY [None]
  - DEATH [None]
  - INJURY [None]
  - THROMBOSIS [None]
  - NEUTROPENIA [None]
  - TRANSFUSION-TRANSMITTED INFECTIOUS DISEASE [None]
  - ATRIAL FIBRILLATION [None]
  - JAUNDICE CHOLESTATIC [None]
  - RENAL TUBULAR DISORDER [None]
  - DRY GANGRENE [None]
  - STAPHYLOCOCCUS TEST POSITIVE [None]
  - FEAR [None]
  - CARDIAC OUTPUT DECREASED [None]
  - CONTINUOUS HAEMODIAFILTRATION [None]
  - RESPIRATORY FAILURE [None]
  - CHOLELITHIASIS [None]
  - ESCHAR [None]
  - WOUND INFECTION [None]
  - METABOLIC ACIDOSIS [None]
  - BACTERIAL SEPSIS [None]
  - DEPRESSION [None]
  - ANHEDONIA [None]
  - EJECTION FRACTION DECREASED [None]
  - BILE DUCT STONE [None]
  - RESPIRATORY DISTRESS [None]
  - BLOOD LACTIC ACID INCREASED [None]
  - DISSEMINATED INTRAVASCULAR COAGULATION [None]
  - VENTRICULAR TACHYCARDIA [None]
  - VENTRICULAR FIBRILLATION [None]
  - DEEP VEIN THROMBOSIS [None]
  - PNEUMONIA ASPIRATION [None]
  - PAIN [None]
  - HEPATIC FAILURE [None]
  - FOOT AMPUTATION [None]
